FAERS Safety Report 22877437 (Version 2)
Quarter: 2023Q4

REPORT INFORMATION
  Report Type: Other
  Country: CN (occurrence: CN)
  Receive Date: 20230829
  Receipt Date: 20231205
  Transmission Date: 20240110
  Serious: Yes (Other)
  Sender: FDA-Public Use
  Company Number: CN-002147023-NVSC2023CN185269

PATIENT

DRUGS (2)
  1. RANIBIZUMAB [Suspect]
     Active Substance: RANIBIZUMAB
     Indication: Diabetic retinopathy
     Dosage: 0.5 ML (VOLUME OF EACH BOTTLE 0.20 ML)
     Route: 050
  2. TROPICAMIDE [Concomitant]
     Active Substance: TROPICAMIDE
     Indication: Mydriasis
     Dosage: UNK

REACTIONS (1)
  - Retinal haemorrhage [Unknown]
